FAERS Safety Report 4413874-5 (Version None)
Quarter: 2004Q3

REPORT INFORMATION
  Report Type: 
  Country: None (occurrence: None)
  Receive Date: 20040728
  Receipt Date: 20040715
  Transmission Date: 20050211
  Serious: Yes (Hospitalization)
  Sender: FDA-Public Use
  Company Number: 2004039971

PATIENT
  Age: 70 Year
  Sex: Female

DRUGS (5)
  1. DOXAZOSIN MESYLATE [Suspect]
     Indication: ILL-DEFINED DISORDER
     Dosage: 4 MG (1 IN 1 D), ORAL
     Route: 048
     Dates: end: 20040614
  2. VALSARTAN (VALSARTAN) [Concomitant]
  3. NIFEDIPINE [Concomitant]
  4. TRICHLORMETHIAZIDE [Concomitant]
  5. OXYBUTYNIN CHLORIDE [Concomitant]

REACTIONS (2)
  - CEREBRAL INFARCTION [None]
  - COUGH [None]
